FAERS Safety Report 11245716 (Version 2)
Quarter: 2015Q3

REPORT INFORMATION
  Report Type: Spontaneous
  Country: JP (occurrence: JP)
  Receive Date: 20150707
  Receipt Date: 20150727
  Transmission Date: 20151125
  Serious: Yes (Hospitalization)
  Sender: FDA-Public Use
  Company Number: JP-B.I. PHARMACEUTICALS,INC./RIDGEFIELD-2015-BI-36168NB

PATIENT
  Age: 73 Year
  Sex: Male

DRUGS (1)
  1. MICAMLO COMBINATION [Suspect]
     Active Substance: AMLODIPINE BESYLATE\TELMISARTAN
     Indication: HYPERTENSION
     Route: 065
     Dates: start: 20150616

REACTIONS (3)
  - Wrong technique in product usage process [Unknown]
  - Cerebral infarction [Unknown]
  - Dysphagia [Unknown]

NARRATIVE: CASE EVENT DATE: 20150616
